FAERS Safety Report 10166844 (Version 2)
Quarter: 2014Q2

REPORT INFORMATION
  Report Type: Spontaneous
  Country: US (occurrence: US)
  Receive Date: 20140512
  Receipt Date: 20140611
  Transmission Date: 20141212
  Serious: Yes (Death, Other)
  Sender: FDA-Public Use
  Company Number: US-ASTELLAS-2014US005147

PATIENT
  Age: 75 Year
  Sex: Female

DRUGS (3)
  1. TARCEVA [Suspect]
     Indication: LUNG NEOPLASM MALIGNANT
     Route: 048
     Dates: start: 20130317
  2. TARCEVA [Suspect]
     Route: 048
     Dates: start: 20130507
  3. TARCEVA [Suspect]
     Route: 048
     Dates: start: 20130213

REACTIONS (4)
  - Death [Fatal]
  - Pulmonary thrombosis [Recovering/Resolving]
  - Rash [Unknown]
  - Cough [Not Recovered/Not Resolved]
